FAERS Safety Report 26207525 (Version 1)
Quarter: 2025Q4

REPORT INFORMATION
  Report Type: Spontaneous
  Country: US (occurrence: US)
  Receive Date: 20251229
  Receipt Date: 20251229
  Transmission Date: 20260118
  Serious: No
  Sender: BRISTOL-MYERS SQUIBB COMPANY
  Company Number: US-BRISTOL-MYERS SQUIBB COMPANY-2025-173494

PATIENT
  Age: 61 Year
  Sex: Male
  Weight: 81.65 kg

DRUGS (3)
  1. ORENCIA [Suspect]
     Active Substance: ABATACEPT
     Indication: Rheumatoid arthritis
     Dosage: 2 BOXES
     Route: 058
     Dates: end: 2024
  2. ORENCIA [Suspect]
     Active Substance: ABATACEPT
     Dosage: 1 BOXES
     Route: 058
     Dates: end: 2024
  3. METHYLPREDNISOLONE [Concomitant]
     Active Substance: METHYLPREDNISOLONE
     Indication: Product used for unknown indication

REACTIONS (2)
  - Off label use [Unknown]
  - Drug ineffective [Unknown]
